FAERS Safety Report 20263680 (Version 1)
Quarter: 2021Q4

REPORT INFORMATION
  Report Type: Spontaneous
  Country: US (occurrence: None)
  Receive Date: 20211230
  Receipt Date: 20211230
  Transmission Date: 20220303
  Serious: Yes (Other)
  Sender: FDA-Public Use
  Company Number: None

PATIENT
  Age: 59 Year
  Sex: Female

DRUGS (1)
  1. CASIRIVIMAB\IMDEVIMAB [Suspect]
     Active Substance: CASIRIVIMAB\IMDEVIMAB
     Indication: COVID-19

REACTIONS (6)
  - Infusion related reaction [None]
  - Nausea [None]
  - Back pain [None]
  - Burning sensation [None]
  - Feeling hot [None]
  - Micturition urgency [None]

NARRATIVE: CASE EVENT DATE: 20211203
